FAERS Safety Report 12252335 (Version 1)
Quarter: 2016Q2

REPORT INFORMATION
  Report Type: Spontaneous
  Country: US (occurrence: None)
  Receive Date: 20160408
  Receipt Date: 20160408
  Transmission Date: 20160815
  Serious: Yes (Hospitalization)
  Sender: FDA-Public Use
  Company Number: None

PATIENT
  Age: 71 Year
  Sex: Male
  Weight: 77.1 kg

DRUGS (11)
  1. GABAPENTIN (NEURONTIN) [Concomitant]
  2. OMEPRAZOLE (PRILOSEC ORAL) [Concomitant]
  3. ZOFRAN ODT [Concomitant]
     Active Substance: ONDANSETRON HYDROCHLORIDE
  4. SYNTHROID [Concomitant]
     Active Substance: LEVOTHYROXINE SODIUM
  5. LOSARTAN-HYDROCHLOROTHIAZIDE (HYZAAR) [Concomitant]
  6. DULOXETINE DELAYED RELEASE (CYMBALTA) [Concomitant]
  7. MORPHINE [Concomitant]
     Active Substance: MORPHINE
  8. PEMBROLIZUMAB, 100MG/4ML MERCK [Suspect]
     Active Substance: PEMBROLIZUMAB
     Indication: MESOTHELIOMA
     Route: 041
     Dates: start: 20151202, end: 20160224
  9. ACETAMINOPHEN\HYDROCODONE BITARTRATE [Concomitant]
     Active Substance: ACETAMINOPHEN\HYDROCODONE BITARTRATE
  10. MORPHINE-SR (ORAMORPH) [Concomitant]
  11. MAGNESIUM HYDROXIDE (MILK OF MAGNESIA) [Concomitant]

REACTIONS (5)
  - Autoimmune disorder [None]
  - Fatigue [None]
  - Nausea [None]
  - Vomiting [None]
  - Hypothyroidism [None]

NARRATIVE: CASE EVENT DATE: 20160328
